FAERS Safety Report 12503740 (Version 1)
Quarter: 2016Q2

REPORT INFORMATION
  Report Type: Spontaneous
  Country: JP (occurrence: JP)
  Receive Date: 20160628
  Receipt Date: 20160628
  Transmission Date: 20160815
  Serious: Yes (Hospitalization, Other)
  Sender: FDA-Public Use
  Company Number: JP-ELI_LILLY_AND_COMPANY-JP201605007461

PATIENT
  Age: 72 Year
  Sex: Male
  Weight: 63 kg

DRUGS (8)
  1. CYRAMZA [Suspect]
     Active Substance: RAMUCIRUMAB
     Dosage: 588 MG, OTHER
     Route: 042
     Dates: start: 20160407, end: 20160509
  2. ROZEREM [Concomitant]
     Active Substance: RAMELTEON
     Indication: INSOMNIA
     Dosage: 8 MG, QD
     Route: 048
     Dates: start: 20150106
  3. KAYEXALATE [Concomitant]
     Active Substance: SODIUM POLYSTYRENE SULFONATE
     Indication: HYPERKALAEMIA
     Dosage: UNK, QD
     Route: 048
     Dates: start: 20150114, end: 20160526
  4. CYRAMZA [Suspect]
     Active Substance: RAMUCIRUMAB
     Indication: GASTRIC CANCER STAGE IV
     Dosage: 580 MG, OTHER
     Route: 042
     Dates: start: 20160323, end: 20160323
  5. PACLITAXEL. [Concomitant]
     Active Substance: PACLITAXEL
     Indication: GASTRIC CANCER STAGE IV
     Dosage: 140 MG, OTHER
     Route: 042
     Dates: start: 20160323, end: 20160509
  6. PANTETHINE SIOE [Concomitant]
     Active Substance: PANTETHINE
     Indication: CONSTIPATION
     Dosage: 300 MG, TID
     Route: 048
     Dates: start: 20150106
  7. PROTECADIN [Concomitant]
     Active Substance: LAFUTIDINE
     Indication: HAEMORRHAGE PROPHYLAXIS
     Dosage: 20 MG, BID
     Route: 048
     Dates: start: 20151028, end: 20160519
  8. POLAPREZINC [Concomitant]
     Active Substance: POLAPREZINC
     Indication: HAEMORRHAGE PROPHYLAXIS
     Dosage: 75 MG, BID
     Route: 048
     Dates: start: 20151028, end: 20160519

REACTIONS (3)
  - Upper gastrointestinal haemorrhage [Recovered/Resolved]
  - Tumour compression [Unknown]
  - Malaise [Unknown]

NARRATIVE: CASE EVENT DATE: 20160519
